FAERS Safety Report 7947906-4 (Version None)
Quarter: 2011Q4

REPORT INFORMATION
  Report Type: 
  Country: None (occurrence: None)
  Receive Date: 20111125
  Receipt Date: 20111115
  Transmission Date: 20120403
  Serious: Yes (Hospitalization, Other)
  Sender: FDA-Public Use
  Company Number: JPI-P-013319

PATIENT
  Age: 68 Year
  Sex: Female

DRUGS (1)
  1. XYREM [Suspect]
     Indication: NARCOLEPSY
     Dosage: 8 GM (4 GM, 2 IN 1 D), ORAL 9GM (4.5 GM, 2 IN 1D), ORAL 4.5 GM (2.25 GM, 2 IN 1 D), ORAL
     Route: 048
     Dates: start: 20070320

REACTIONS (6)
  - FEELING ABNORMAL [None]
  - SPINAL FUSION SURGERY [None]
  - SPINAL COLUMN STENOSIS [None]
  - FALL [None]
  - INTERVERTEBRAL DISC DISORDER [None]
  - MEMORY IMPAIRMENT [None]
